FAERS Safety Report 6890709-2 (Version None)
Quarter: 2010Q3

REPORT INFORMATION
  Report Type: 
  Country: None (occurrence: None)
  Receive Date: 20100731
  Receipt Date: 20090302
  Transmission Date: 20110219
  Serious: Yes (Other)
  Sender: FDA-Public Use
  Company Number: US-PFIZER INC-2009162341

PATIENT
  Sex: Male
  Weight: 131.52 kg

DRUGS (8)
  1. LIPITOR [Suspect]
     Indication: BLOOD CHOLESTEROL INCREASED
     Dosage: 20 MG, 1X/DAY
     Route: 048
  2. LIPITOR [Suspect]
     Indication: HYPERLIPIDAEMIA
  3. GEMFIBROZIL [Concomitant]
     Dosage: 600 MG, 2X/DAY
  4. METFORMIN HYDROCHLORIDE [Concomitant]
     Dosage: 1 G, 2X/DAY
  5. LISINOPRIL [Concomitant]
     Dosage: 10 MG, UNK
  6. GLIPIZIDE [Concomitant]
     Dosage: 5 MG, UNK
  7. FUROSEMIDE [Concomitant]
     Dosage: 20 MG, UNK
  8. ACETYLSALICYLIC ACID [Concomitant]
     Dosage: 162 MG, 1X/DAY

REACTIONS (4)
  - ARTHRITIS [None]
  - MUSCULAR WEAKNESS [None]
  - PARAESTHESIA [None]
  - WEIGHT INCREASED [None]
